FAERS Safety Report 8617110-5 (Version None)
Quarter: 2012Q3

REPORT INFORMATION
  Report Type: 
  Country: None (occurrence: None)
  Receive Date: 20120823
  Receipt Date: 20120815
  Transmission Date: 20120928
  Serious: Yes (Hospitalization, Other)
  Sender: FDA-Public Use
  Company Number: US-009507513-2012SP022371

PATIENT

DRUGS (1)
  1. NUVARING [Suspect]
     Indication: CONTRACEPTION
     Dosage: UNK
     Dates: start: 20100514, end: 20100801

REACTIONS (7)
  - PULMONARY FIBROSIS [None]
  - ANXIETY [None]
  - BREAST MASS [None]
  - ABDOMINAL PAIN UPPER [None]
  - ANTICOAGULATION DRUG LEVEL BELOW THERAPEUTIC [None]
  - COSTOCHONDRITIS [None]
  - PULMONARY EMBOLISM [None]
